FAERS Safety Report 14731492 (Version 6)
Quarter: 2018Q2

REPORT INFORMATION
  Report Type: Spontaneous
  Country: DE (occurrence: DE)
  Receive Date: 20180407
  Receipt Date: 20180530
  Transmission Date: 20180711
  Serious: Yes (Life-Threatening, Hospitalization, Other)
  Sender: FDA-Public Use
  Company Number: DE-AUROBINDO-AUR-APL-2018-018561

PATIENT
  Age: 56 Year
  Sex: Male

DRUGS (33)
  1. MIRTAZAPINE. [Suspect]
     Active Substance: MIRTAZAPINE
     Dosage: DOSAGE FORM: UNSPECIFIED ()
     Route: 065
  2. RISPERDAL [Suspect]
     Active Substance: RISPERIDONE
     Dosage: DOSAGE FORM: UNSPECIFIED ()
     Route: 065
  3. TRUXAL                             /00012101/ [Suspect]
     Active Substance: CHLORPROTHIXENE
     Indication: PRODUCT USED FOR UNKNOWN INDICATION
     Dosage: UNK
     Route: 065
  4. LAMICTAL [Suspect]
     Active Substance: LAMOTRIGINE
     Indication: PRODUCT USED FOR UNKNOWN INDICATION
     Dosage: UNK
     Route: 065
  5. TRILEPTAL [Suspect]
     Active Substance: OXCARBAZEPINE
     Dosage: UNK ()
  6. TRILEPTAL [Suspect]
     Active Substance: OXCARBAZEPINE
     Dosage: UNK ()
  7. TRILEPTAL [Suspect]
     Active Substance: OXCARBAZEPINE
     Dosage: UNK ()
  8. MIRTAZAPINE. [Suspect]
     Active Substance: MIRTAZAPINE
     Dosage: UNK ()
  9. ZOLOFT [Suspect]
     Active Substance: SERTRALINE HYDROCHLORIDE
     Indication: PRODUCT USED FOR UNKNOWN INDICATION
     Dosage: UNK
     Route: 065
  10. CYMBALTA [Suspect]
     Active Substance: DULOXETINE HYDROCHLORIDE
     Indication: PRODUCT USED FOR UNKNOWN INDICATION
     Dosage: UNK
     Route: 065
  11. LAMICTAL [Suspect]
     Active Substance: LAMOTRIGINE
     Dosage: DOSAGE FORM: UNSPECIFIED ()
     Route: 065
  12. TREVILOR RETARD [Suspect]
     Active Substance: VENLAFAXINE HYDROCHLORIDE
     Indication: PRODUCT USED FOR UNKNOWN INDICATION
     Dosage: UNK
     Route: 065
  13. SEROQUEL [Suspect]
     Active Substance: QUETIAPINE FUMARATE
     Dosage: DOSAGE FORM: UNSPECIFIED ()
     Route: 065
  14. TAVOR (LORAZEPAM) [Suspect]
     Active Substance: LORAZEPAM
     Indication: PRODUCT USED FOR UNKNOWN INDICATION
     Route: 065
  15. ZOLOFT [Suspect]
     Active Substance: SERTRALINE HYDROCHLORIDE
     Dosage: DOSAGE FORM: UNSPECIFIED ()
     Route: 065
  16. RISPERDAL [Suspect]
     Active Substance: RISPERIDONE
     Dosage: DOSAGE FORM: UNSPECIFIED ()
     Route: 065
  17. SEROQUEL [Suspect]
     Active Substance: QUETIAPINE FUMARATE
     Indication: PRODUCT USED FOR UNKNOWN INDICATION
     Dosage: UNK
     Route: 048
  18. MIRTAZAPINE. [Suspect]
     Active Substance: MIRTAZAPINE
     Indication: PRODUCT USED FOR UNKNOWN INDICATION
     Dosage: UNK
     Route: 065
  19. RISPERDAL [Suspect]
     Active Substance: RISPERIDONE
     Dosage: UNK ()
  20. TAXILAN                            /00162501/ [Suspect]
     Active Substance: PERAZINE
     Indication: PRODUCT USED FOR UNKNOWN INDICATION
     Dosage: UNK
     Route: 065
  21. MYDOCALM                           /00293002/ [Suspect]
     Active Substance: TOLPERISONE HYDROCHLORIDE
     Indication: PRODUCT USED FOR UNKNOWN INDICATION
     Dosage: UNK
     Route: 065
  22. ZOLOFT [Suspect]
     Active Substance: SERTRALINE HYDROCHLORIDE
     Dosage: DOSAGE FORM: UNSPECIFIED ()
     Route: 065
  23. TRILEPTAL [Suspect]
     Active Substance: OXCARBAZEPINE
     Dosage: UNK ()
  24. TRILEPTAL [Suspect]
     Active Substance: OXCARBAZEPINE
     Dosage: UNK ()
  25. RISPERDAL [Suspect]
     Active Substance: RISPERIDONE
     Indication: PRODUCT USED FOR UNKNOWN INDICATION
     Dosage: UNK
     Route: 065
  26. FLUANXOL                           /00109702/ [Suspect]
     Active Substance: FLUPENTIXOL
     Indication: PRODUCT USED FOR UNKNOWN INDICATION
     Dosage: UNK
     Route: 065
  27. TRILEPTAL [Suspect]
     Active Substance: OXCARBAZEPINE
     Indication: PRODUCT USED FOR UNKNOWN INDICATION
     Dosage: UNK ()
     Route: 065
  28. PERAZINE [Suspect]
     Active Substance: PERAZINE
     Indication: PRODUCT USED FOR UNKNOWN INDICATION
     Dosage: ()
     Route: 065
  29. NEUROCIL                           /00038602/ [Suspect]
     Active Substance: LEVOMEPROMAZINE MALEATE
     Indication: PRODUCT USED FOR UNKNOWN INDICATION
     Dosage: UNK
     Route: 065
  30. LAMICTAL [Suspect]
     Active Substance: LAMOTRIGINE
     Dosage: UNK ()
  31. SEROQUEL [Suspect]
     Active Substance: QUETIAPINE FUMARATE
     Dosage: DOSAGE FORM: UNSPECIFIED ()
     Route: 065
  32. MIRTAZAPINE. [Suspect]
     Active Substance: MIRTAZAPINE
     Dosage: DOSAGE FORM: UNSPECIFIED ()
     Route: 065
  33. LAMICTAL [Suspect]
     Active Substance: LAMOTRIGINE
     Dosage: DOSAGE FORM: UNSPECIFIED ()
     Route: 065

REACTIONS (19)
  - Electrocardiogram QT prolonged [Unknown]
  - Dementia [Unknown]
  - Suicidal behaviour [Unknown]
  - Therapy cessation [Unknown]
  - Infection [Unknown]
  - Urinary tract infection [Unknown]
  - Coordination abnormal [Unknown]
  - Hallucination [Unknown]
  - Staring [Unknown]
  - Intentional self-injury [Unknown]
  - Wound [Unknown]
  - Serotonin syndrome [Unknown]
  - Withdrawal syndrome [Unknown]
  - Blood glucose increased [Unknown]
  - Hypothyroidism [Unknown]
  - Gaze palsy [Unknown]
  - Tooth loss [Unknown]
  - Contraindicated product administered [Unknown]
  - Skin disorder [Unknown]

NARRATIVE: CASE EVENT DATE: 201707
